FAERS Safety Report 18728549 (Version 2)
Quarter: 2021Q1

REPORT INFORMATION
  Report Type: Spontaneous
  Country: JP (occurrence: JP)
  Receive Date: 20210112
  Receipt Date: 20210113
  Transmission Date: 20210419
  Serious: Yes (Other)
  Sender: FDA-Public Use
  Company Number: JP-RECORDATI RARE DISEASES INC.-2016008514

PATIENT
  Age: 2 Day
  Sex: Male
  Weight: 1.68 kg

DRUGS (1)
  1. INDOCIN [Suspect]
     Active Substance: INDOMETHACIN
     Indication: PATENT DUCTUS ARTERIOSUS
     Dosage: FROM DAY 2 TO DAY 4 AND READMINISTERED ON DAY 5 AND 6
     Route: 042

REACTIONS (2)
  - Renal tubular disorder [Recovered/Resolved]
  - Hypertension [Recovered/Resolved]
